FAERS Safety Report 6441903-6 (Version None)
Quarter: 2009Q4

REPORT INFORMATION
  Report Type: 
  Country: None (occurrence: None)
  Receive Date: 20091113
  Receipt Date: 20091113
  Transmission Date: 20100525
  Serious: Yes (Other)
  Sender: FDA-Public Use
  Company Number: None

PATIENT
  Age: 33 Year
  Sex: Female
  Weight: 74.8435 kg

DRUGS (1)
  1. TRI LO SPRINTEC [Suspect]
     Indication: CONTRACEPTION

REACTIONS (5)
  - ANGER [None]
  - HAEMORRHAGE [None]
  - MOOD SWINGS [None]
  - PRODUCT SUBSTITUTION ISSUE [None]
  - WEIGHT INCREASED [None]
